FAERS Safety Report 6370960-0 (Version None)
Quarter: 2009Q3

REPORT INFORMATION
  Report Type: 
  Country: None (occurrence: None)
  Receive Date: 20090923
  Receipt Date: 20071018
  Transmission Date: 20100115
  Serious: Yes (Hospitalization)
  Sender: FDA-Public Use
  Company Number: US-ASTRAZENECA-2006UW22646

PATIENT
  Age: 20904 Day
  Sex: Male
  Weight: 93.9 kg

DRUGS (29)
  1. SEROQUEL [Suspect]
     Indication: DEPRESSION
     Route: 048
     Dates: start: 20040101, end: 20060101
  2. SEROQUEL [Suspect]
     Indication: POST-TRAUMATIC STRESS DISORDER
     Route: 048
     Dates: start: 20040101, end: 20060101
  3. SEROQUEL [Suspect]
     Indication: AGGRESSION
     Route: 048
     Dates: start: 20040101, end: 20060101
  4. SEROQUEL [Suspect]
     Indication: HYPERVIGILANCE
     Route: 048
     Dates: start: 20040101, end: 20060101
  5. SEROQUEL [Suspect]
     Indication: ANXIETY
     Route: 048
     Dates: start: 20040101, end: 20060101
  6. SEROQUEL [Suspect]
     Indication: THINKING ABNORMAL
     Route: 048
     Dates: start: 20040101, end: 20060101
  7. SEROQUEL [Suspect]
     Dosage: 50 MG- 900 MG
     Route: 048
     Dates: start: 20051125
  8. SEROQUEL [Suspect]
     Dosage: 50 MG- 900 MG
     Route: 048
     Dates: start: 20051125
  9. SEROQUEL [Suspect]
     Dosage: 50 MG- 900 MG
     Route: 048
     Dates: start: 20051125
  10. SEROQUEL [Suspect]
     Dosage: 50 MG- 900 MG
     Route: 048
     Dates: start: 20051125
  11. SEROQUEL [Suspect]
     Dosage: 50 MG- 900 MG
     Route: 048
     Dates: start: 20051125
  12. SEROQUEL [Suspect]
     Dosage: 50 MG- 900 MG
     Route: 048
     Dates: start: 20051125
  13. ZOLOFT [Concomitant]
  14. ALBUTEROL [Concomitant]
  15. ASPIRIN [Concomitant]
  16. DIVALPROEX SODIUM [Concomitant]
  17. FORMOTEROL FUMARATE [Concomitant]
  18. HYDROCORTISONE [Concomitant]
  19. NOVOLIN R [Concomitant]
  20. LISINOPRIL [Concomitant]
  21. METOPROLOL TARTRATE [Concomitant]
  22. MIRTAZAPINE [Concomitant]
  23. NIFEDIPINE [Concomitant]
  24. SERTRALINE HYDROCHLORIDE [Concomitant]
  25. SIMVASTATIN [Concomitant]
  26. TERAZOSIN HYDROCHLORIDE [Concomitant]
  27. DEXAMETHASONE [Concomitant]
  28. GEMFIBROZIL [Concomitant]
  29. GLYCERYL TRINITRATE [Concomitant]

REACTIONS (5)
  - BLOOD GLUCOSE INCREASED [None]
  - DIABETES MELLITUS [None]
  - DIABETIC KETOACIDOSIS [None]
  - HYPERGLYCAEMIA [None]
  - TYPE 2 DIABETES MELLITUS [None]
